FAERS Safety Report 17491124 (Version 2)
Quarter: 2020Q1

REPORT INFORMATION
  Report Type: Spontaneous
  Country: SE (occurrence: SE)
  Receive Date: 20200303
  Receipt Date: 20200309
  Transmission Date: 20200409
  Serious: Yes (Death, Hospitalization, Other)
  Sender: FDA-Public Use
  Company Number: SE-ASTRAZENECA-2020SE29392

PATIENT
  Age: 57 Year
  Sex: Male

DRUGS (9)
  1. FLUVASTATIN [Suspect]
     Active Substance: FLUVASTATIN SODIUM
     Route: 065
  2. ACETYLSALICYLIC ACID [Suspect]
     Active Substance: ASPIRIN
     Route: 065
  3. IPRATROPIUM [Suspect]
     Active Substance: IPRATROPIUM
     Route: 065
  4. TORASEMIDE [Suspect]
     Active Substance: TORSEMIDE
     Route: 065
  5. OMEPRAZOLE. [Suspect]
     Active Substance: OMEPRAZOLE
     Route: 048
  6. NINTEDANIB [Suspect]
     Active Substance: NINTEDANIB
     Indication: NON-SMALL CELL LUNG CANCER
     Route: 065
  7. GLYCERYL TRINITRARE [Suspect]
     Active Substance: NITROGLYCERIN
     Route: 065
  8. METAMIZOLE [Suspect]
     Active Substance: METAMIZOLE
     Route: 065
  9. LORMETAZEPAM [Suspect]
     Active Substance: LORMETAZEPAM
     Route: 065

REACTIONS (7)
  - Respiratory failure [Fatal]
  - Diarrhoea [Unknown]
  - Colitis ischaemic [Unknown]
  - Decreased appetite [Unknown]
  - Vomiting [Unknown]
  - Mucosal inflammation [Unknown]
  - Nausea [Unknown]
